FAERS Safety Report 21859215 (Version 3)
Quarter: 2023Q1

REPORT INFORMATION
  Report Type: Spontaneous
  Country: ET (occurrence: ET)
  Receive Date: 20230113
  Receipt Date: 20230201
  Transmission Date: 20230417
  Serious: Yes (Hospitalization, Other)
  Sender: FDA-Public Use
  Company Number: ET-Accord-295666

PATIENT
  Age: 45 Year
  Sex: Male

DRUGS (2)
  1. ONDANSETRON [Suspect]
     Active Substance: ONDANSETRON
     Indication: Dyspepsia
     Dosage: SINGLE 8 MG DOSE OF ONDANSETRON INTRAVENOUSLY AND 0.5 ML (2 MG)
     Route: 042
  2. ESOMEPRAZOLE [Concomitant]
     Active Substance: ESOMEPRAZOLE
     Indication: Duodenitis
     Dosage: 40 MG PER DAY FOR A MONTH
     Route: 048

REACTIONS (5)
  - Anaphylactoid reaction [Recovered/Resolved]
  - Arteriospasm coronary [Recovered/Resolved]
  - Myocardial injury [Recovered/Resolved]
  - Kounis syndrome [Recovered/Resolved]
  - Left ventricular hypertrophy [Recovered/Resolved]
